FAERS Safety Report 7412056-2 (Version None)
Quarter: 2011Q2

REPORT INFORMATION
  Report Type: 
  Country: None (occurrence: None)
  Receive Date: 20110405
  Receipt Date: 20110325
  Transmission Date: 20111010
  Serious: Yes (Hospitalization)
  Sender: FDA-Public Use
  Company Number: 2010129664

PATIENT
  Age: 48 Year
  Sex: Female

DRUGS (1)
  1. FRAGMIN [Suspect]
     Dosage: 7500 IU

REACTIONS (5)
  - INJURY [None]
  - INJURY ASSOCIATED WITH DEVICE [None]
  - ANTIPHOSPHOLIPID ANTIBODIES POSITIVE [None]
  - ANTIPHOSPHOLIPID SYNDROME [None]
  - SHOCK [None]
